FAERS Safety Report 14101598 (Version 1)
Quarter: 2017Q4

REPORT INFORMATION
  Report Type: Spontaneous
  Country: US (occurrence: None)
  Receive Date: 20171018
  Receipt Date: 20171018
  Transmission Date: 20180321
  Serious: Yes (Hospitalization)
  Sender: FDA-Public Use
  Company Number: None

PATIENT
  Age: 55 Year
  Sex: Female
  Weight: 60.1 kg

DRUGS (1)
  1. DOXIL [Suspect]
     Active Substance: DOXORUBICIN HYDROCHLORIDE
     Dates: end: 20170829

REACTIONS (5)
  - Metastases to peritoneum [None]
  - Abdominal pain [None]
  - Hypophagia [None]
  - Implant site atrophy [None]
  - Ascites [None]

NARRATIVE: CASE EVENT DATE: 20171006
